FAERS Safety Report 9051744 (Version 2)
Quarter: 2013Q2

REPORT INFORMATION
  Report Type: Spontaneous
  Country: US (occurrence: US)
  Receive Date: 20130207
  Receipt Date: 20130605
  Transmission Date: 20140414
  Serious: No
  Sender: FDA-Public Use
  Company Number: US-BIOGENIDEC-2013BI011002

PATIENT
  Age: 61 Year
  Sex: Female

DRUGS (1)
  1. TYSABRI [Suspect]
     Indication: MULTIPLE SCLEROSIS
     Route: 042
     Dates: start: 20120517

REACTIONS (11)
  - Fall [Recovered/Resolved]
  - Feeling cold [Not Recovered/Not Resolved]
  - Loss of consciousness [Recovered/Resolved]
  - Dysgraphia [Not Recovered/Not Resolved]
  - Meniscus injury [Recovered/Resolved]
  - Hemiparesis [Not Recovered/Not Resolved]
  - Loss of control of legs [Unknown]
  - Dizziness [Unknown]
  - Asthenia [Not Recovered/Not Resolved]
  - Nasopharyngitis [Not Recovered/Not Resolved]
  - Fatigue [Not Recovered/Not Resolved]
